FAERS Safety Report 8378681-X (Version None)
Quarter: 2012Q2

REPORT INFORMATION
  Report Type: 
  Country: None (occurrence: None)
  Receive Date: 20120522
  Receipt Date: 20120518
  Transmission Date: 20120825
  Serious: Yes (Other)
  Sender: FDA-Public Use
  Company Number: PHHY2012NO042709

PATIENT
  Sex: Female

DRUGS (2)
  1. GILENYA [Suspect]
     Indication: MULTIPLE SCLEROSIS
     Route: 048
     Dates: start: 20120214, end: 20120314
  2. DEXAMETHASONE [Suspect]

REACTIONS (3)
  - CYSTOID MACULAR OEDEMA [None]
  - EYE PRURITUS [None]
  - UVEITIS [None]
